FAERS Safety Report 5074091-1 (Version None)
Quarter: 2006Q3

REPORT INFORMATION
  Report Type: 
  Country: None (occurrence: None)
  Receive Date: 20060808
  Receipt Date: 20060524
  Transmission Date: 20061208
  Serious: Yes (Death)
  Sender: FDA-Public Use
  Company Number: JP-SANOFI-SYNTHELABO-A01200604142

PATIENT
  Sex: Male
  Weight: 67 kg

DRUGS (9)
  1. FLUOROURACIL [Suspect]
     Dosage: 400MG/M2 IN BOLUS ON DAY 1 THEN 2400MG/M2 AS CONTINUOUS INFUSION ON DAY 1-2
     Route: 042
     Dates: start: 20060419, end: 20060420
  2. OXALIPLATIN [Suspect]
     Indication: LARGE INTESTINE CARCINOMA
     Dosage: 85MG/M2 ON DAY 1
     Route: 042
     Dates: start: 20060419, end: 20060419
  3. AMLODIN [Concomitant]
     Route: 048
     Dates: start: 20060224, end: 20060610
  4. MEVALOTIN [Concomitant]
     Route: 048
     Dates: start: 20060224, end: 20060610
  5. CLEANAL [Concomitant]
     Route: 048
     Dates: start: 20060224, end: 20060610
  6. MAGLAX [Concomitant]
     Route: 048
     Dates: start: 20060224, end: 20060610
  7. LAC-B [Concomitant]
     Route: 048
     Dates: start: 20060224, end: 20060610
  8. EXCELASE [Concomitant]
     Route: 048
     Dates: start: 20060224, end: 20060610
  9. CALCIUM LEVOFOLINATE [Suspect]
     Route: 042
     Dates: start: 20060419, end: 20060419

REACTIONS (2)
  - CARDIO-RESPIRATORY ARREST [None]
  - INTERSTITIAL LUNG DISEASE [None]
